FAERS Safety Report 12425868 (Version 1)
Quarter: 2016Q2

REPORT INFORMATION
  Report Type: Spontaneous
  Country: US (occurrence: US)
  Receive Date: 20160601
  Receipt Date: 20160601
  Transmission Date: 20160815
  Serious: No
  Sender: FDA-Public Use
  Company Number: US-PERRIGO-15US005925

PATIENT
  Age: 68 Year
  Sex: Female
  Weight: 49.89 kg

DRUGS (4)
  1. EXELON [Concomitant]
     Active Substance: RIVASTIGMINE TARTRATE
     Indication: PRODUCT USED FOR UNKNOWN INDICATION
     Dosage: 4.6 MG, QD
     Route: 061
  2. PREDNISONE. [Suspect]
     Active Substance: PREDNISONE
     Indication: PRURITUS
     Dosage: UNKNOWN, TID
     Route: 061
     Dates: start: 201504
  3. PREDNISONE. [Suspect]
     Active Substance: PREDNISONE
     Indication: ERYTHEMA
     Dosage: UNKNOWN, TID
     Route: 048
     Dates: start: 201504
  4. TRIAMCINOLONE ACETONIDE. [Suspect]
     Active Substance: TRIAMCINOLONE ACETONIDE
     Indication: PRURITUS
     Dosage: UNKNOWN, UNKNOWN
     Route: 061
     Dates: start: 201504

REACTIONS (1)
  - Condition aggravated [Recovering/Resolving]

NARRATIVE: CASE EVENT DATE: 201504
